FAERS Safety Report 15627171 (Version 3)
Quarter: 2020Q4

REPORT INFORMATION
  Report Type: Spontaneous
  Country: NZ (occurrence: NZ)
  Receive Date: 20181116
  Receipt Date: 20201119
  Transmission Date: 20210113
  Serious: Yes (Other)
  Sender: FDA-Public Use
  Company Number: NZ-JNJFOC-20181109082

PATIENT
  Sex: Female

DRUGS (1)
  1. REMICADE [Suspect]
     Active Substance: INFLIXIMAB
     Indication: PSORIASIS
     Route: 042

REACTIONS (5)
  - Psoriasis [Unknown]
  - Product use issue [Unknown]
  - Therapeutic response decreased [Unknown]
  - Off label use [Unknown]
  - Hysterectomy [Unknown]
